FAERS Safety Report 11365912 (Version 1)
Quarter: 2015Q3

REPORT INFORMATION
  Report Type: Spontaneous
  Country: US (occurrence: US)
  Receive Date: 20150811
  Receipt Date: 20150811
  Transmission Date: 20151125
  Serious: Yes (Other)
  Sender: FDA-Public Use
  Company Number: US-PFIZER INC-2015245698

PATIENT
  Age: 18 Year
  Sex: Female

DRUGS (4)
  1. PROLIXIN [Concomitant]
     Active Substance: FLUPHENAZINE HYDROCHLORIDE
     Dosage: UNK
  2. COGENTIN [Concomitant]
     Active Substance: BENZTROPINE MESYLATE
  3. TRILAFON [Concomitant]
     Active Substance: PERPHENAZINE
     Indication: EMOTIONAL DISORDER
     Dosage: 6 MG, 3X/DAY
     Dates: start: 19620203
  4. DILANTIN [Suspect]
     Active Substance: PHENYTOIN
     Indication: SEIZURE
     Dosage: 100 MG, 3X/DAY
     Dates: start: 19620108

REACTIONS (2)
  - Hepatotoxicity [Recovered/Resolved]
  - Serum sickness [Recovered/Resolved]
